FAERS Safety Report 6129350-8 (Version None)
Quarter: 2009Q1

REPORT INFORMATION
  Report Type: 
  Country: None (occurrence: None)
  Receive Date: 20090320
  Receipt Date: 20080101
  Transmission Date: 20090719
  Serious: Yes (Death)
  Sender: FDA-Public Use
  Company Number: 005871

PATIENT
  Sex: 0

DRUGS (3)
  1. PLETAL [Suspect]
     Dosage: 100-200 MG, DAILY DOSE, ORAL;  200 MG, DAILY DOSE; ORAL
     Route: 048
  2. ASPIRIN [Suspect]
     Dosage: ORAL; 100-200 MG, DAILY DOSE, ORAL
     Route: 048
  3. CLOPIDOGREL [Suspect]
     Dosage: 300-600MG, DAILY DOSE; ORAL; ORAL
     Route: 048

REACTIONS (1)
  - DEATH [None]
